FAERS Safety Report 8989000 (Version 1)
Quarter: 2012Q4

REPORT INFORMATION
  Report Type: Spontaneous
  Country: US (occurrence: None)
  Receive Date: 20121224
  Receipt Date: 20121224
  Transmission Date: 20130627
  Serious: No
  Sender: FDA-Public Use
  Company Number: None

PATIENT
  Age: 43 Year
  Sex: Male
  Weight: 73 kg

DRUGS (1)
  1. TRAZODONE [Suspect]
     Indication: PTSD
     Dates: start: 20121001, end: 20121215

REACTIONS (2)
  - Priapism [None]
  - Refusal of treatment by patient [None]
